FAERS Safety Report 5247794-3 (Version None)
Quarter: 2007Q1

REPORT INFORMATION
  Report Type: 
  Country: None (occurrence: None)
  Receive Date: 20070227
  Receipt Date: 20070214
  Transmission Date: 20070707
  Serious: Yes (Other)
  Sender: FDA-Public Use
  Company Number: 2007SE00867

PATIENT
  Age: 51 Year
  Sex: Female

DRUGS (4)
  1. DIPRIVAN [Suspect]
     Route: 042
     Dates: start: 20070101, end: 20070101
  2. INTRALIPID 10% [Interacting]
     Route: 042
  3. CELOCURIN SOLUTION [Concomitant]
  4. ULTIVA POWDER [Concomitant]

REACTIONS (3)
  - DRUG INEFFECTIVE [None]
  - DRUG INTERACTION [None]
  - UNWANTED AWARENESS DURING ANAESTHESIA [None]
